FAERS Safety Report 4419393-4 (Version None)
Quarter: 2004Q3

REPORT INFORMATION
  Report Type: 
  Country: None (occurrence: None)
  Receive Date: 20040809
  Receipt Date: 20040123
  Transmission Date: 20050211
  Serious: No
  Sender: FDA-Public Use
  Company Number: US-GLAXOSMITHKLINE-A0495050A

PATIENT
  Age: 42 Year
  Sex: Male

DRUGS (3)
  1. PAXIL [Suspect]
     Dosage: 20MG IN THE MORNING
     Route: 048
  2. LEVOTHROID [Concomitant]
  3. CENTRUM [Concomitant]

REACTIONS (1)
  - CHOKING [None]
